FAERS Safety Report 18711397 (Version 1)
Quarter: 2021Q1

REPORT INFORMATION
  Report Type: Spontaneous
  Country: US (occurrence: US)
  Receive Date: 20210106
  Receipt Date: 20210106
  Transmission Date: 20210419
  Serious: Yes (Death)
  Sender: FDA-Public Use
  Company Number: None

PATIENT
  Age: 69 Year
  Sex: Male

DRUGS (8)
  1. AMLODIPINE 10MG TABLET [Concomitant]
  2. TACROLIMUS CAPSULE [Suspect]
     Active Substance: TACROLIMUS
     Indication: HEART TRANSPLANT
     Route: 048
  3. SIROLIMUS TABLET [Suspect]
     Active Substance: SIROLIMUS
     Indication: HEART TRANSPLANT
     Route: 048
  4. PANTOPRAZOLE 40MG TABLET [Concomitant]
  5. PREDNISONE 5MG TABLET [Concomitant]
  6. CARVEDILOL 25MG TABLET [Concomitant]
  7. MAGNESIUM OXIDE 400MG TABLET [Concomitant]
  8. ATORVASTATIN 80MG TABLET [Concomitant]
     Active Substance: ATORVASTATIN

REACTIONS (1)
  - COVID-19 [None]

NARRATIVE: CASE EVENT DATE: 20201231
